FAERS Safety Report 9018488 (Version 2)
Quarter: 2013Q3

REPORT INFORMATION
  Report Type: Spontaneous
  Country: US (occurrence: US)
  Receive Date: 20130118
  Receipt Date: 20130807
  Transmission Date: 20140515
  Serious: No
  Sender: FDA-Public Use
  Company Number: US-PFIZER INC-2013022108

PATIENT
  Sex: Female

DRUGS (2)
  1. LYRICA [Suspect]
     Dosage: UNK
  2. LYRICA [Suspect]
     Dosage: UNK
     Dates: start: 20120808, end: 20130729

REACTIONS (4)
  - Pain [Unknown]
  - Irritability [Unknown]
  - Insomnia [Unknown]
  - Decreased appetite [Unknown]
